FAERS Safety Report 5210900-0 (Version None)
Quarter: 2007Q1

REPORT INFORMATION
  Report Type: 
  Country: None (occurrence: None)
  Receive Date: 20070117
  Receipt Date: 20070105
  Transmission Date: 20070707
  Serious: Yes (Other)
  Sender: FDA-Public Use
  Company Number: US-PFIZER INC-2007003161

PATIENT
  Sex: Male
  Weight: 111.1 kg

DRUGS (7)
  1. LYRICA [Suspect]
     Indication: BACK PAIN
     Dates: start: 20061222, end: 20070103
  2. LIPITOR [Concomitant]
  3. VICODIN [Concomitant]
     Indication: BACK PAIN
  4. PRINIVIL [Concomitant]
  5. MAXZIDE [Concomitant]
  6. ASPIRIN [Concomitant]
  7. CLARITIN [Concomitant]

REACTIONS (4)
  - AMNESIA [None]
  - DISORIENTATION [None]
  - HYPOAESTHESIA [None]
  - INCOHERENT [None]
